FAERS Safety Report 7795659-5 (Version None)
Quarter: 2011Q3

REPORT INFORMATION
  Report Type: 
  Country: None (occurrence: None)
  Receive Date: 20110930
  Receipt Date: 20110922
  Transmission Date: 20111222
  Serious: Yes (Hospitalization, Disabling, Other)
  Sender: FDA-Public Use
  Company Number: 2011SP001056

PATIENT
  Age: 51 Year
  Sex: Female
  Weight: 75.2971 kg

DRUGS (4)
  1. EFFEXOR XR [Suspect]
     Indication: PRODUCT USED FOR UNKNOWN INDICATION
     Dosage: 37.5 DF, BID, PO
     Route: 048
     Dates: end: 20080418
  2. EFFEXOR XR [Suspect]
     Indication: PRODUCT USED FOR UNKNOWN INDICATION
     Dosage: 37.5 DF, BID, PO
     Route: 048
     Dates: start: 20080401
  3. NUVARING [Suspect]
     Indication: MENSTRUAL CYCLE MANAGEMENT
     Dosage: VAG
     Route: 067
     Dates: start: 20060301, end: 20090115
  4. NUVARING [Suspect]
     Indication: CONTRACEPTION
     Dosage: VAG
     Route: 067
     Dates: start: 20060301, end: 20090115

REACTIONS (55)
  - NEURALGIA [None]
  - SINUS TACHYCARDIA [None]
  - FEELING ABNORMAL [None]
  - BLOOD GLUCOSE ABNORMAL [None]
  - SPINAL OSTEOARTHRITIS [None]
  - HYPERTENSION [None]
  - MIGRAINE [None]
  - SPINAL COLUMN STENOSIS [None]
  - ORAL HERPES [None]
  - MEMORY IMPAIRMENT [None]
  - CHEST DISCOMFORT [None]
  - FALL [None]
  - ASTHENIA [None]
  - HAEMORRHOIDS [None]
  - NERVE COMPRESSION [None]
  - DEEP VEIN THROMBOSIS [None]
  - PAIN IN EXTREMITY [None]
  - HERPES SIMPLEX [None]
  - RESTLESS LEGS SYNDROME [None]
  - IRRITABLE BOWEL SYNDROME [None]
  - PRODUCT QUALITY ISSUE [None]
  - NERVOUS SYSTEM DISORDER [None]
  - RHINITIS ALLERGIC [None]
  - INSOMNIA [None]
  - EXERCISE TOLERANCE DECREASED [None]
  - FOLLICULITIS [None]
  - NECK PAIN [None]
  - HORDEOLUM [None]
  - THROMBOSIS [None]
  - BALANCE DISORDER [None]
  - HYPOXIA [None]
  - NODULE [None]
  - SINUS DISORDER [None]
  - POLYNEUROPATHY [None]
  - PULMONARY EMBOLISM [None]
  - ANXIETY [None]
  - ABDOMINAL PAIN [None]
  - VERTIGO [None]
  - STRESS [None]
  - DERMATITIS ATOPIC [None]
  - DERMATITIS CONTACT [None]
  - PULMONARY INFARCTION [None]
  - CEREBRAL SMALL VESSEL ISCHAEMIC DISEASE [None]
  - BACK PAIN [None]
  - HYPERCOAGULATION [None]
  - SYNCOPE [None]
  - DIARRHOEA [None]
  - DEMYELINATION [None]
  - DIVERTICULITIS [None]
  - FLATULENCE [None]
  - DISTURBANCE IN ATTENTION [None]
  - ECZEMA [None]
  - ROTATOR CUFF SYNDROME [None]
  - DYSPNOEA [None]
  - BLOOD CHOLESTEROL INCREASED [None]
